FAERS Safety Report 15409784 (Version 1)
Quarter: 2018Q3

REPORT INFORMATION
  Report Type: Report from Study
  Country: JP (occurrence: JP)
  Receive Date: 20180920
  Receipt Date: 20180920
  Transmission Date: 20181010
  Serious: Yes (Hospitalization, Other)
  Sender: FDA-Public Use
  Company Number: PHHY2012JP054729

PATIENT
  Age: 79 Year
  Sex: Female
  Weight: 72 kg

DRUGS (9)
  1. BASEN [Concomitant]
     Active Substance: VOGLIBOSE
     Indication: PROPHYLAXIS
     Dosage: 0.6 MG, UNK
     Route: 048
     Dates: start: 20100210, end: 20100324
  2. TASIGNA [Suspect]
     Active Substance: NILOTINIB
     Dosage: 400 MG, DAILY
     Route: 048
     Dates: start: 20100818, end: 20100825
  3. METFORMIN [Concomitant]
     Active Substance: METFORMIN HYDROCHLORIDE
     Indication: PROPHYLAXIS
     Dosage: 500 MG, UNK
     Route: 048
     Dates: start: 20100210
  4. TASIGNA [Suspect]
     Active Substance: NILOTINIB
     Indication: CHRONIC MYELOID LEUKAEMIA
     Dosage: 400 MG, DAILY
     Route: 048
     Dates: start: 20090704, end: 20090728
  5. MAGMITT KENEI [Concomitant]
     Indication: PROPHYLAXIS
     Dosage: 1500 MG, UNK
     Route: 048
     Dates: start: 20090512, end: 20090903
  6. FASTIC [Concomitant]
     Active Substance: NATEGLINIDE
     Indication: PROPHYLAXIS
     Dosage: 270 MG, UNK
     Route: 048
     Dates: start: 20100210, end: 20100324
  7. TASIGNA [Suspect]
     Active Substance: NILOTINIB
     Dosage: 800 MG, DAILY
     Route: 048
     Dates: start: 20100210, end: 20100817
  8. TASIGNA [Suspect]
     Active Substance: NILOTINIB
     Dosage: 800 MG, DAILY
     Route: 048
     Dates: start: 20090729, end: 20090824
  9. MYSLEE [Concomitant]
     Active Substance: ZOLPIDEM TARTRATE
     Indication: PROPHYLAXIS
     Dosage: 10 MG, UNK
     Route: 048
     Dates: start: 20090812, end: 20090907

REACTIONS (9)
  - Uterine cancer [Recovered/Resolved]
  - White blood cell count increased [Recovered/Resolved]
  - Electrocardiogram QT prolonged [Unknown]
  - Gamma-glutamyltransferase increased [Not Recovered/Not Resolved]
  - Aspartate aminotransferase increased [Not Recovered/Not Resolved]
  - Platelet count decreased [Not Recovered/Not Resolved]
  - Altered state of consciousness [Recovered/Resolved]
  - Blood glucose increased [Recovered/Resolved]
  - Dementia [Unknown]

NARRATIVE: CASE EVENT DATE: 20100120
